FAERS Safety Report 8221973 (Version 2)
Quarter: 2012Q4

REPORT INFORMATION
  Report Type: Spontaneous
  Country: KR (occurrence: None)
  Receive Date: 20111021
  Receipt Date: 20121019
  Transmission Date: 20130627
  Serious: Yes (Hospitalization, Other)
  Sender: FDA-Public Use
  Company Number: DSA_47885_2011

PATIENT
  Age: 60 Year
  Sex: Male

DRUGS (10)
  1. BUPROPION HYDROCHLORIDE [Suspect]
     Indication: DEPRESSION
     Dosage: (DF)
     Dates: start: 201012
  2. BUPROPION HYDROCHLORIDE [Suspect]
     Indication: DEPRESSION
     Dosage: (DF)
  3. ESCITALOPRAM [Suspect]
     Indication: DEPRESSION
     Dosage: DF
  4. MIRTAZAPINE [Suspect]
     Indication: DEPRESSION
     Dates: end: 201012
  5. ALPRAZOLAM [Suspect]
     Indication: DEPRESSION
     Dosage: DF
  6. CLONAZEPAM [Suspect]
  7. CLOPIDOGREL [Concomitant]
  8. SIMVASTATIN [Concomitant]
  9. TELMISARTAN [Concomitant]
  10. ASPIRIN [Concomitant]

REACTIONS (11)
  - PO2 decreased [None]
  - Blood aldosterone increased [None]
  - Secondary adrenocortical insufficiency [None]
  - Anxiety [None]
  - Insomnia [None]
  - Carcinoembryonic antigen increased [None]
  - Hyponatraemia [None]
  - Ejection fraction decreased [None]
  - Blood chloride decreased [None]
  - Weight increased [None]
  - Blood urea increased [None]
